FAERS Safety Report 9916226 (Version 1)
Quarter: 2014Q1

REPORT INFORMATION
  Report Type: Spontaneous
  Country: GB (occurrence: GB)
  Receive Date: 20140221
  Receipt Date: 20140221
  Transmission Date: 20141002
  Serious: Yes (Other)
  Sender: FDA-Public Use
  Company Number: PHHY2014GB010194

PATIENT
  Age: 49 Year
  Sex: Male

DRUGS (10)
  1. CICLOSPORIN [Suspect]
     Indication: PSORIASIS
     Dosage: 2 MG/KG DAILY
  2. CICLOSPORIN [Suspect]
     Dosage: 2 MG/KG, DAILY
  3. CICLOSPORIN [Suspect]
     Dosage: 50 MG, BID
  4. PREDNISOLONE [Suspect]
     Dosage: 40 MG, DAILY
     Route: 048
  5. METHOTREXATE [Suspect]
     Indication: PSORIASIS
  6. INFLIXIMAB [Suspect]
     Indication: PSORIASIS
     Dosage: 5 MG/KG, UNK
     Route: 042
     Dates: end: 201202
  7. FUMADERM [Suspect]
     Indication: PSORIASIS
     Dosage: 240 MG, TID
  8. ADALIMUMAB [Suspect]
     Indication: PSORIASIS
  9. USTEKINUMAB [Suspect]
     Indication: PSORIASIS
     Dosage: 90 MG, UNK
  10. ACITRETIN [Concomitant]
     Dosage: 50 MG, DAILY

REACTIONS (15)
  - Demyelinating polyneuropathy [Unknown]
  - Muscular weakness [Recovering/Resolving]
  - Hypoaesthesia [Unknown]
  - Brachial plexopathy [Unknown]
  - Sensory disturbance [Unknown]
  - Hypotonia [Unknown]
  - Muscle atrophy [Unknown]
  - Median nerve injury [Unknown]
  - Hypokinesia [Unknown]
  - Neurological decompensation [Unknown]
  - Ataxia [Not Recovered/Not Resolved]
  - Neuralgia [Unknown]
  - Areflexia [Unknown]
  - Drug ineffective [Unknown]
  - No therapeutic response [Unknown]
